FAERS Safety Report 7169736-6 (Version None)
Quarter: 2010Q4

REPORT INFORMATION
  Report Type: 
  Country: None (occurrence: None)
  Receive Date: 20101217
  Receipt Date: 20101210
  Transmission Date: 20110411
  Serious: Yes (Hospitalization)
  Sender: FDA-Public Use
  Company Number: HR-PERRIGO-10HR015499

PATIENT
  Age: 19 Year
  Sex: Female

DRUGS (2)
  1. MESALAMINE [Suspect]
     Indication: COLITIS ULCERATIVE
     Dosage: UNK
     Route: 065
  2. DECORTIN [Concomitant]
     Indication: PYODERMA
     Dosage: 30 MG, UNK
     Route: 065

REACTIONS (3)
  - INFECTION [None]
  - SKIN LESION [None]
  - STOMATITIS [None]
